FAERS Safety Report 11283000 (Version 1)
Quarter: 2015Q3

REPORT INFORMATION
  Report Type: Spontaneous
  Country: US (occurrence: None)
  Receive Date: 20150717
  Receipt Date: 20150717
  Transmission Date: 20151125
  Serious: No
  Sender: FDA-Public Use
  Company Number: None

PATIENT
  Age: 67 Year
  Sex: Female

DRUGS (1)
  1. HUMIRA [Suspect]
     Active Substance: ADALIMUMAB
     Indication: RHEUMATOID ARTHRITIS
     Dosage: EVERY 14 DAYS
     Route: 058
     Dates: start: 201311, end: 201505

REACTIONS (4)
  - Hypersensitivity [None]
  - Dyspnoea [None]
  - Wheezing [None]
  - Pulmonary congestion [None]

NARRATIVE: CASE EVENT DATE: 201505
